FAERS Safety Report 7349184-6 (Version None)
Quarter: 2011Q1

REPORT INFORMATION
  Report Type: 
  Country: None (occurrence: None)
  Receive Date: 20110303
  Receipt Date: 20110215
  Transmission Date: 20110831
  Serious: Yes (Hospitalization)
  Sender: FDA-Public Use
  Company Number: 1000019020

PATIENT
  Age: 25 Year
  Sex: Male

DRUGS (6)
  1. OMEPRAZOLE [Suspect]
     Dosage: 20 MG  (20 MG, 1 IN 1 D)
  2. CLOZAPINE [Suspect]
     Dosage: 400 MG (400 MG, 1 IN 1 DAY)
  3. RISPERIDONE [Suspect]
     Indication: SCHIZOPHRENIA, PARANOID TYPE
     Dosage: 50 MG, INTRAMUSCULAR
     Route: 030
  4. TOPIRAMATE [Suspect]
     Dosage: 400 MG (400 MG, 1 IN 1 D)
  5. ESCITALOPRAM OXALATE [Suspect]
     Indication: SCHIZOPHRENIA, PARANOID TYPE
     Dosage: 10 MG
  6. BIPERIDEN (BIPERIDEN) (TABLETS) [Suspect]
     Dosage: 4 MG (4 MG)

REACTIONS (2)
  - HEPATIC ENCEPHALOPATHY [None]
  - HEPATITIS TOXIC [None]
